FAERS Safety Report 4752696-2 (Version None)
Quarter: 2005Q3

REPORT INFORMATION
  Report Type: 
  Country: None (occurrence: None)
  Receive Date: 20050823
  Receipt Date: 20050808
  Transmission Date: 20060218
  Serious: Yes (Other)
  Sender: FDA-Public Use
  Company Number: 216767

PATIENT
  Sex: Male

DRUGS (1)
  1. RITUXAN [Suspect]
     Indication: NON-HODGKIN'S LYMPHOMA
     Dates: start: 20050701

REACTIONS (5)
  - CONFUSIONAL STATE [None]
  - INSOMNIA [None]
  - JOINT SWELLING [None]
  - RASH [None]
  - THROMBOSIS [None]
